FAERS Safety Report 14579067 (Version 13)
Quarter: 2019Q4

REPORT INFORMATION
  Report Type: Report from Study
  Country: AU (occurrence: AU)
  Receive Date: 20180227
  Receipt Date: 20191223
  Transmission Date: 20200122
  Serious: Yes (Death, Hospitalization)
  Sender: FDA-Public Use
  Company Number: AU-EISAI MEDICAL RESEARCH-EC-2018-036445

PATIENT
  Age: 85 Year
  Sex: Male
  Weight: 79.4 kg

DRUGS (17)
  1. EVEROLIMUS. [Suspect]
     Active Substance: EVEROLIMUS
     Indication: CLEAR CELL RENAL CELL CARCINOMA
     Route: 048
     Dates: start: 20180207, end: 2018
  2. LENVATINIB [Suspect]
     Active Substance: LENVATINIB
     Route: 048
     Dates: start: 2018, end: 20180703
  3. EVEROLIMUS. [Suspect]
     Active Substance: EVEROLIMUS
     Route: 048
     Dates: start: 20180606, end: 20180607
  4. CODEINE LINCTUS [Concomitant]
     Active Substance: CHLOROFORM\CODEINE PHOSPHATE\DRIMIA MARITIMA BULB
  5. EVEROLIMUS. [Suspect]
     Active Substance: EVEROLIMUS
     Route: 048
     Dates: start: 2018, end: 20180703
  6. ENDONE [Concomitant]
     Active Substance: OXYCODONE HYDROCHLORIDE
  7. PRAZOSIN. [Concomitant]
     Active Substance: PRAZOSIN
  8. KARVEA [Concomitant]
     Active Substance: IRBESARTAN
  9. MINIPRESS [Concomitant]
     Active Substance: PRAZOSIN HYDROCHLORIDE
  10. LENVATINIB [Suspect]
     Active Substance: LENVATINIB
     Indication: CLEAR CELL RENAL CELL CARCINOMA
     Route: 048
     Dates: start: 20180207, end: 20180220
  11. LENVATINIB [Suspect]
     Active Substance: LENVATINIB
     Route: 048
     Dates: start: 20180315, end: 20180607
  12. DAPTA. [Concomitant]
     Active Substance: DAPTA
  13. FISH OIL [Concomitant]
     Active Substance: FISH OIL
  14. GLUCOSAMINE [Concomitant]
     Active Substance: GLUCOSAMINE
  15. METFORMIN [Concomitant]
     Active Substance: METFORMIN HYDROCHLORIDE
  16. INDAPAMIDE. [Concomitant]
     Active Substance: INDAPAMIDE
  17. HORSERADISH AND GARLIC [Concomitant]

REACTIONS (6)
  - Urosepsis [Fatal]
  - Accidental overdose [Recovered/Resolved]
  - Electrolyte imbalance [Recovered/Resolved]
  - Gastric ulcer [Not Recovered/Not Resolved]
  - Fall [Recovered/Resolved]
  - Hypertension [Recovered/Resolved]

NARRATIVE: CASE EVENT DATE: 20180207
